FAERS Safety Report 5280221-9 (Version None)
Quarter: 2007Q1

REPORT INFORMATION
  Report Type: 
  Country: None (occurrence: None)
  Receive Date: 20070329
  Receipt Date: 20070320
  Transmission Date: 20070707
  Serious: Yes (Death)
  Sender: FDA-Public Use
  Company Number: JP-ROCHE-489395

PATIENT
  Age: 12 Month
  Sex: Female
  Weight: 9 kg

DRUGS (6)
  1. TAMIFLU [Suspect]
     Indication: INFLUENZA
     Dosage: DRUG REPORTED AS DRY SYRUP. DRUG NAME REPORTED AS TAMIFLU DRY SYRUP 3%.
     Route: 048
     Dates: start: 20060211, end: 20060211
  2. ERYTHROCIN [Suspect]
     Indication: BRONCHITIS
     Route: 048
     Dates: start: 20060210, end: 20060211
  3. POLARAMINE [Suspect]
     Indication: BRONCHITIS
     Route: 048
     Dates: start: 20060210, end: 20060211
  4. MUCOSAL [Suspect]
     Indication: BRONCHITIS
     Route: 048
     Dates: start: 20060210, end: 20060211
  5. ASVERIN [Suspect]
     Indication: BRONCHITIS
     Route: 048
     Dates: start: 20060210, end: 20060211
  6. HOKUNALIN [Suspect]
     Indication: BRONCHITIS
     Route: 061
     Dates: start: 20060210, end: 20060211

REACTIONS (1)
  - CARDIO-RESPIRATORY ARREST [None]
